FAERS Safety Report 7774668-6 (Version None)
Quarter: 2011Q3

REPORT INFORMATION
  Report Type: 
  Country: None (occurrence: None)
  Receive Date: 20110923
  Receipt Date: 20110922
  Transmission Date: 20111222
  Serious: Yes (Hospitalization)
  Sender: FDA-Public Use
  Company Number: AU-PFIZER INC-2011195881

PATIENT
  Sex: Female

DRUGS (1)
  1. ACCURETIC [Suspect]

REACTIONS (3)
  - RASH [None]
  - PRURITUS GENERALISED [None]
  - JOINT SWELLING [None]
